FAERS Safety Report 10648093 (Version 1)
Quarter: 2014Q4

REPORT INFORMATION
  Report Type: Spontaneous
  Country: US (occurrence: None)
  Receive Date: 20141211
  Receipt Date: 20141211
  Transmission Date: 20150529
  Serious: No
  Sender: FDA-Public Use
  Company Number: None

PATIENT

DRUGS (2)
  1. SODIUM CHLORIDE 0.9% W/V AND GLUCOSE 5% W/V SOLUTION FOR INFUSION BP [Suspect]
     Active Substance: DEXTROSE
     Dosage: DOSAGE FORM: INJECTABLE, ADM ROUTE: INJECTION, STRENGTH: 0.9%, TYPE: IV BAG, SIZE: 500 ML
  2. DEXTROSE. [Suspect]
     Active Substance: DEXTROSE
     Dosage: DOSAGE FORM: INJECTABLE, ADM ROUTE: INJECTION, STRENGTH: 10 %, TYPE: IV INJECTION, SIZE: 500 ML:

REACTIONS (2)
  - Product packaging confusion [None]
  - Circumstance or information capable of leading to medication error [None]
